FAERS Safety Report 5906713-4 (Version None)
Quarter: 2008Q4

REPORT INFORMATION
  Report Type: 
  Country: None (occurrence: None)
  Receive Date: 20081002
  Receipt Date: 20080924
  Transmission Date: 20090506
  Serious: Yes (Other)
  Sender: FDA-Public Use
  Company Number: BE-AMGEN-UK297306

PATIENT
  Age: 45 Year
  Sex: Male

DRUGS (3)
  1. NEUPOGEN [Suspect]
     Indication: MYELODYSPLASTIC SYNDROME
     Route: 058
     Dates: start: 20080118
  2. NEUPOGEN [Suspect]
     Route: 058
     Dates: start: 20080301
  3. NEUPOGEN [Suspect]
     Route: 058
     Dates: start: 20080506

REACTIONS (1)
  - NEUTROPHIL COUNT DECREASED [None]
